FAERS Safety Report 16959082 (Version 1)
Quarter: 2019Q4

REPORT INFORMATION
  Report Type: Spontaneous
  Country: US (occurrence: US)
  Receive Date: 20191024
  Receipt Date: 20191024
  Transmission Date: 20200122
  Serious: Yes (Other)
  Sender: FDA-Public Use
  Company Number: US-AUROBINDO-AUR-APL-2019-068439

PATIENT
  Age: 30 Year
  Sex: Male

DRUGS (4)
  1. RISPERIDONE. [Suspect]
     Active Substance: RISPERIDONE
     Indication: PSYCHOTIC DISORDER
     Dosage: 1 MILLIGRAM, AT BED TIME
     Route: 065
  2. CLOZAPINE. [Suspect]
     Active Substance: CLOZAPINE
     Indication: PSYCHOTIC DISORDER
     Dosage: 250 MILLIGRAM, AT BED TIME
     Route: 065
  3. MODAFINIL. [Suspect]
     Active Substance: MODAFINIL
     Indication: SOMNOLENCE
  4. MODAFINIL. [Suspect]
     Active Substance: MODAFINIL
     Indication: SCHIZOPHRENIA
     Dosage: 100 MILLIGRAM, ONCE A DAY
     Route: 065

REACTIONS (9)
  - Schizophrenia [Recovering/Resolving]
  - Asocial behaviour [Recovering/Resolving]
  - Somnolence [Recovering/Resolving]
  - Gait disturbance [Recovered/Resolved]
  - Flat affect [Recovering/Resolving]
  - Apathy [Recovering/Resolving]
  - Abnormal behaviour [Recovered/Resolved]
  - Obsessive-compulsive disorder [Recovered/Resolved]
  - Anxiety [Recovered/Resolved]
